FAERS Safety Report 9313720 (Version 1)
Quarter: 2013Q2

REPORT INFORMATION
  Report Type: Spontaneous
  Country: US (occurrence: US)
  Receive Date: 20130529
  Receipt Date: 20130529
  Transmission Date: 20140414
  Serious: Yes (Other)
  Sender: FDA-Public Use
  Company Number: US-BIOGENIDEC-2013BI047353

PATIENT
  Sex: Female

DRUGS (1)
  1. AVONEX [Suspect]
     Indication: EXPOSURE VIA FATHER
     Dates: start: 20081107

REACTIONS (1)
  - Hypertension [Recovered/Resolved]
